FAERS Safety Report 6521825-2 (Version None)
Quarter: 2009Q4

REPORT INFORMATION
  Report Type: 
  Country: None (occurrence: None)
  Receive Date: 20091222
  Receipt Date: 20091215
  Transmission Date: 20100525
  Serious: Yes (Hospitalization)
  Sender: FDA-Public Use
  Company Number: TPA2009A04179

PATIENT
  Age: 66 Year
  Sex: Female

DRUGS (3)
  1. ULORIC [Suspect]
     Indication: GOUT
     Dosage: PER ORAL
     Route: 048
     Dates: start: 20090101
  2. UNSPECIFIED ANTIHYPERTENSIVES (ANTIHYPERTENSIVES) [Concomitant]
  3. LIPID-LOWERING AGENTS (CHOLESTEROL- AND TRIGLYCERIDE REDUCERS) [Concomitant]

REACTIONS (3)
  - KIDNEY INFECTION [None]
  - NEPHROLITHIASIS [None]
  - SEPSIS [None]
